FAERS Safety Report 24595471 (Version 2)
Quarter: 2024Q4

REPORT INFORMATION
  Report Type: Spontaneous
  Country: US (occurrence: US)
  Receive Date: 20241109
  Receipt Date: 20241219
  Transmission Date: 20250115
  Serious: No
  Sender: ROCHE
  Company Number: US-ROCHE-10000123496

PATIENT
  Age: 15 Year
  Sex: Female
  Weight: 63.5 kg

DRUGS (4)
  1. XOLAIR [Suspect]
     Active Substance: OMALIZUMAB
     Indication: Idiopathic urticaria
     Route: 058
     Dates: start: 202405, end: 202409
  2. XOLAIR [Suspect]
     Active Substance: OMALIZUMAB
     Indication: Chronic spontaneous urticaria
     Dosage: ONGOING
     Route: 058
     Dates: start: 202410
  3. MICRONOR [Concomitant]
     Active Substance: NORETHINDRONE
  4. XYZAL [Concomitant]
     Active Substance: LEVOCETIRIZINE DIHYDROCHLORIDE

REACTIONS (7)
  - Device defective [Unknown]
  - Device issue [Unknown]
  - Product dose omission issue [Unknown]
  - Product complaint [Unknown]
  - Off label use [Unknown]
  - Haemorrhage [Recovered/Resolved]
  - Contusion [Recovered/Resolved]

NARRATIVE: CASE EVENT DATE: 20240501
